FAERS Safety Report 6030551-8 (Version None)
Quarter: 2009Q1

REPORT INFORMATION
  Report Type: 
  Country: None (occurrence: None)
  Receive Date: 20090105
  Receipt Date: 20090105
  Transmission Date: 20090719
  Serious: Yes (Other)
  Sender: FDA-Public Use
  Company Number: None

PATIENT
  Age: 21 Year
  Sex: Female
  Weight: 49.8957 kg

DRUGS (2)
  1. WELLBUTRIN XL [Suspect]
     Indication: ATTENTION DEFICIT/HYPERACTIVITY DISORDER
     Dosage: 150 1 A DAY
     Dates: start: 20081203, end: 20090102
  2. WELLBUTRIN XL [Suspect]
     Indication: DEPRESSION
     Dosage: 150 1 A DAY
     Dates: start: 20081203, end: 20090102

REACTIONS (6)
  - AGITATION [None]
  - ANTISOCIAL BEHAVIOUR [None]
  - APATHY [None]
  - MENTAL DISORDER [None]
  - PARANOIA [None]
  - SUICIDAL IDEATION [None]
